FAERS Safety Report 25653646 (Version 2)
Quarter: 2025Q3

REPORT INFORMATION
  Report Type: Report from Study
  Country: US (occurrence: US)
  Receive Date: 20250807
  Receipt Date: 20250908
  Transmission Date: 20251020
  Serious: No
  Sender: SUNOVION
  Company Number: US-SUMITOMO PHARMA SWITZERLAND GMBH-2025SPA001126

PATIENT
  Age: 75 Year
  Sex: Male

DRUGS (19)
  1. ORGOVYX [Suspect]
     Active Substance: RELUGOLIX
     Indication: Prostate cancer
     Dosage: 360 MG, SINGLE
     Route: 048
     Dates: start: 202407, end: 202407
  2. ORGOVYX [Suspect]
     Active Substance: RELUGOLIX
     Dosage: 120 MG, QD
     Route: 048
     Dates: start: 202407
  3. ASPIRIN [Concomitant]
     Active Substance: ASPIRIN
  4. VITAMIN B [Concomitant]
     Active Substance: VITAMIN B
  5. CALCIUM [Concomitant]
     Active Substance: CALCIUM
  6. CIALIS [Concomitant]
     Active Substance: TADALAFIL
  7. FIBER THERAPY (CALCIUM POLYCARBOPHIL) [Concomitant]
     Active Substance: CALCIUM POLYCARBOPHIL
  8. GABAPENTIN [Concomitant]
     Active Substance: GABAPENTIN
  9. LIPITOR [Concomitant]
     Active Substance: ATORVASTATIN CALCIUM
  10. MAGNESIUM [Concomitant]
     Active Substance: MAGNESIUM
  11. VITAMINS [Concomitant]
     Active Substance: VITAMINS
  12. NAPROXEN [Concomitant]
     Active Substance: NAPROXEN
  13. PHENAZOPYRIDINE [Concomitant]
     Active Substance: PHENAZOPYRIDINE
  14. VITAMIN D3 [Concomitant]
     Active Substance: CHOLECALCIFEROL
  15. Oncovite [Concomitant]
  16. FISH OIL [Concomitant]
     Active Substance: FISH OIL
  17. MICARDIS [Concomitant]
     Active Substance: TELMISARTAN
  18. DIETARY SUPPLEMENT\PROBIOTICS [Concomitant]
     Active Substance: DIETARY SUPPLEMENT\PROBIOTICS NOS
  19. UBIQUINOL [Concomitant]
     Active Substance: UBIQUINOL

REACTIONS (7)
  - Lymphoedema [Unknown]
  - Apathy [Unknown]
  - Weight fluctuation [Unknown]
  - Nocturia [Unknown]
  - Lethargy [Unknown]
  - Fatigue [Unknown]
  - Loss of libido [Unknown]
